FAERS Safety Report 6449931-1 (Version None)
Quarter: 2009Q4

REPORT INFORMATION
  Report Type: 
  Country: None (occurrence: None)
  Receive Date: 20091123
  Receipt Date: 20091113
  Transmission Date: 20100525
  Serious: Yes (Hospitalization)
  Sender: FDA-Public Use
  Company Number: US-BIOGENIDEC-2009BI037234

PATIENT
  Age: 40 Year
  Sex: Male

DRUGS (4)
  1. TYSABRI [Suspect]
     Indication: MULTIPLE SCLEROSIS
     Route: 042
     Dates: start: 20070808
  2. BACLOFEN [Concomitant]
  3. CELEXA [Concomitant]
  4. SEASONAL INFLUENZA VACCINE [Concomitant]
     Indication: IMMUNISATION
     Dates: start: 20090101, end: 20090101

REACTIONS (5)
  - CLOSTRIDIUM DIFFICILE COLITIS [None]
  - HYPOKALAEMIA [None]
  - PNEUMONIA [None]
  - SEPSIS [None]
  - WOUND [None]
